FAERS Safety Report 20136225 (Version 1)
Quarter: 2021Q4

REPORT INFORMATION
  Report Type: Report from Study
  Country: FR (occurrence: FR)
  Receive Date: 20211201
  Receipt Date: 20211201
  Transmission Date: 20220303
  Serious: Yes (Other)
  Sender: FDA-Public Use
  Company Number: FR-BAXTER-2021BAX035008

PATIENT
  Age: 63 Year
  Sex: Female

DRUGS (16)
  1. INOTUZUMAB OZOGAMICIN [Suspect]
     Active Substance: INOTUZUMAB OZOGAMICIN
     Dosage: INDUCTION 1: DAY 1
     Route: 065
     Dates: start: 20201215, end: 20201215
  2. INOTUZUMAB OZOGAMICIN [Suspect]
     Active Substance: INOTUZUMAB OZOGAMICIN
     Dosage: INDUCTION I; DAY 8
     Route: 065
     Dates: start: 20201222, end: 20201222
  3. INOTUZUMAB OZOGAMICIN [Suspect]
     Active Substance: INOTUZUMAB OZOGAMICIN
     Dosage: INDUCTION I; DAY 15
     Route: 065
     Dates: start: 20201229, end: 20201229
  4. INOTUZUMAB OZOGAMICIN [Suspect]
     Active Substance: INOTUZUMAB OZOGAMICIN
     Dosage: INDUCTION II; DAY 1
     Route: 065
     Dates: start: 20210122, end: 20210122
  5. INOTUZUMAB OZOGAMICIN [Suspect]
     Active Substance: INOTUZUMAB OZOGAMICIN
     Dosage: INDUCTION II; DAY 8
     Route: 065
     Dates: start: 20210129, end: 20210129
  6. VINCRISTINE SULFATE [Suspect]
     Active Substance: VINCRISTINE SULFATE
     Dosage: INDUCRTION 1: DAY 1
     Route: 065
     Dates: start: 20201215, end: 20201215
  7. VINCRISTINE SULFATE [Suspect]
     Active Substance: VINCRISTINE SULFATE
     Dosage: INDUCTION I; DAY 8
     Route: 065
     Dates: start: 20201222, end: 20201222
  8. VINCRISTINE SULFATE [Suspect]
     Active Substance: VINCRISTINE SULFATE
     Dosage: INDUCTION I; DAY 15
     Route: 065
     Dates: start: 20201229, end: 20201229
  9. VINCRISTINE SULFATE [Suspect]
     Active Substance: VINCRISTINE SULFATE
     Dosage: INDUCTION I; DAY 22
     Route: 065
     Dates: start: 20210105, end: 20210105
  10. METHOTREXATE [Suspect]
     Active Substance: METHOTREXATE
     Dosage: INDUCTION 1: DAY 2
     Route: 065
     Dates: start: 20201216, end: 20201216
  11. METHOTREXATE [Suspect]
     Active Substance: METHOTREXATE
     Dosage: INDUCTION II; DAY 2
     Route: 065
     Dates: start: 20210123, end: 20210123
  12. CYCLOPHOSPHAMIDE [Suspect]
     Active Substance: CYCLOPHOSPHAMIDE
     Dosage: INDUCTION 2; DAY 1
     Route: 065
     Dates: start: 20210122, end: 20210122
  13. CYCLOPHOSPHAMIDE [Suspect]
     Active Substance: CYCLOPHOSPHAMIDE
     Dosage: INDUCTION II; DAY 2
     Route: 065
     Dates: start: 20210123, end: 20210123
  14. CYCLOPHOSPHAMIDE [Suspect]
     Active Substance: CYCLOPHOSPHAMIDE
     Dosage: INDUCTION II; DAY 3
     Route: 065
     Dates: start: 20210124, end: 20210124
  15. CYTARABINE [Concomitant]
     Active Substance: CYTARABINE
     Dosage: UNK
     Route: 065
     Dates: start: 20201216
  16. CYTARABINE [Concomitant]
     Active Substance: CYTARABINE
     Dosage: UNK
     Route: 065
     Dates: start: 20210123

REACTIONS (1)
  - Jugular vein thrombosis [Recovered/Resolved]

NARRATIVE: CASE EVENT DATE: 20210121
